FAERS Safety Report 21158086 (Version 1)
Quarter: 2022Q3

REPORT INFORMATION
  Report Type: Spontaneous
  Country: US (occurrence: None)
  Receive Date: 20220801
  Receipt Date: 20220801
  Transmission Date: 20221027
  Serious: Yes (Other)
  Sender: FDA-Public Use
  Company Number: None

PATIENT
  Age: 69 Year
  Sex: Female
  Weight: 90 kg

DRUGS (4)
  1. PAXLOVID [Suspect]
     Active Substance: NIRMATRELVIR\RITONAVIR
     Indication: COVID-19
     Dosage: FREQUENCY : TWICE A DAY;?
     Route: 048
     Dates: start: 20220731
  2. Hydroclorothyazide [Concomitant]
     Dates: start: 20120101
  3. CALCIUM [Concomitant]
     Active Substance: CALCIUM
     Dates: start: 20210101
  4. DIETARY SUPPLEMENT\HERBALS\MILK THISTLE [Concomitant]
     Active Substance: DIETARY SUPPLEMENT\HERBALS\MILK THISTLE
     Dates: start: 20160101

REACTIONS (3)
  - Dysgeusia [None]
  - Ageusia [None]
  - Anosmia [None]

NARRATIVE: CASE EVENT DATE: 20220731
